FAERS Safety Report 9765907 (Version 1)
Quarter: 2013Q4

REPORT INFORMATION
  Report Type: Spontaneous
  Country: US (occurrence: US)
  Receive Date: 20131217
  Receipt Date: 20131217
  Transmission Date: 20140711
  Serious: No
  Sender: FDA-Public Use
  Company Number: US-BIOGENIDEC-2013BI111318

PATIENT
  Sex: Female

DRUGS (8)
  1. TECFIDERA [Suspect]
     Indication: MULTIPLE SCLEROSIS
     Dates: start: 201310
  2. METHYLPHENIDATE HCL [Concomitant]
  3. ADVIL [Concomitant]
  4. TYLENOL EXTRA STRENGTH [Concomitant]
  5. SIMVASTATIN [Concomitant]
  6. AMITRIPTYLINE [Concomitant]
  7. FLUOXETINE HCL [Concomitant]
  8. ATENOLOL [Concomitant]

REACTIONS (3)
  - Urticaria [Unknown]
  - Flushing [Unknown]
  - Pruritus [Unknown]
